FAERS Safety Report 6382838-7 (Version None)
Quarter: 2009Q3

REPORT INFORMATION
  Report Type: 
  Country: None (occurrence: None)
  Receive Date: 20090930
  Receipt Date: 20090922
  Transmission Date: 20100115
  Serious: Yes (Hospitalization, Other)
  Sender: FDA-Public Use
  Company Number: US-JNJFOC-20090907100

PATIENT
  Sex: Male

DRUGS (5)
  1. FENTANYL TRANSDERMAL SYSTEM [Suspect]
     Indication: BACK PAIN
     Route: 062
  2. HYDROCODONE [Concomitant]
     Route: 065
  3. VALIUM [Concomitant]
     Route: 065
  4. LEXAPRO [Concomitant]
     Route: 065
  5. AMITRIPTYLINE [Concomitant]
     Route: 065

REACTIONS (15)
  - DRUG DOSE OMISSION [None]
  - DYSKINESIA [None]
  - FALL [None]
  - HAEMORRHAGE [None]
  - HEART RATE DECREASED [None]
  - HYPOTENSION [None]
  - INSOMNIA [None]
  - LETHARGY [None]
  - MUSCLE TWITCHING [None]
  - OVERDOSE [None]
  - RESTLESSNESS [None]
  - THERAPY CESSATION [None]
  - THINKING ABNORMAL [None]
  - TREATMENT NONCOMPLIANCE [None]
  - WITHDRAWAL SYNDROME [None]
